FAERS Safety Report 9461596 (Version 1)
Quarter: 2013Q3

REPORT INFORMATION
  Report Type: Spontaneous
  Country: JP (occurrence: None)
  Receive Date: 20130813
  Receipt Date: 20130813
  Transmission Date: 20140515
  Serious: Yes (Hospitalization)
  Sender: FDA-Public Use
  Company Number: FK201303204

PATIENT
  Age: 47 Year
  Sex: Female

DRUGS (3)
  1. FLUDARABINE (MANUFACTURER UNKNOWN) (FLUDARABINE PHOSPHATE) (FLUDARABINE PHOSPHATE) [Suspect]
     Indication: CHRONIC LYMPHOCYTIC LEUKAEMIA
  2. CYCLOPHOSPHAMIDE (CYCLOPHOSPHAMIDE) (CYCLOPHOSPHAMIDE) [Suspect]
     Indication: CHRONIC LYMPHOCYTIC LEUKAEMIA
  3. RITUXIMAB (RITUXIMAB) (RITUXIMAB) [Suspect]
     Indication: CHRONIC LYMPHOCYTIC LEUKAEMIA

REACTIONS (3)
  - Myelodysplastic syndrome [None]
  - Bone marrow failure [None]
  - Haematotoxicity [None]
